FAERS Safety Report 17243381 (Version 1)
Quarter: 2020Q1

REPORT INFORMATION
  Report Type: Spontaneous
  Country: CA (occurrence: CA)
  Receive Date: 20200107
  Receipt Date: 20200107
  Transmission Date: 20200409
  Serious: Yes (Life-Threatening)
  Sender: FDA-Public Use
  Company Number: CA-TEVA-2020-CA-1164636

PATIENT
  Age: 47 Year
  Sex: Male
  Weight: 87 kg

DRUGS (18)
  1. CYTARABINE. [Concomitant]
     Active Substance: CYTARABINE
     Route: 037
  2. MIRTAZAPINE. [Concomitant]
     Active Substance: MIRTAZAPINE
  3. POTASSIUM CHLORIDE. [Concomitant]
     Active Substance: POTASSIUM CHLORIDE
  4. FOLINIC ACID [Concomitant]
     Active Substance: LEUCOVORIN
  5. HYDROCORTISONE. [Concomitant]
     Active Substance: HYDROCORTISONE
  6. AMITRIPTYLINE [Concomitant]
     Active Substance: AMITRIPTYLINE
  7. DEXAMETHASONE. [Concomitant]
     Active Substance: DEXAMETHASONE
  8. DEXLANSOPRAZOLE [Concomitant]
     Active Substance: DEXLANSOPRAZOLE
  9. OLANZAPINE. [Concomitant]
     Active Substance: OLANZAPINE
  10. ONDANSETRON [Concomitant]
     Active Substance: ONDANSETRON
  11. ALTEPLASE. [Concomitant]
     Active Substance: ALTEPLASE
     Route: 042
  12. METHOTREXATE. [Suspect]
     Active Substance: METHOTREXATE
     Indication: BURKITT^S LYMPHOMA
     Route: 041
  13. CITALOPRAM [Concomitant]
     Active Substance: CITALOPRAM HYDROBROMIDE
  14. FUROSEMIDE. [Concomitant]
     Active Substance: FUROSEMIDE
  15. RANITIDINE. [Concomitant]
     Active Substance: RANITIDINE
  16. TEMAZEPAM. [Concomitant]
     Active Substance: TEMAZEPAM
  17. SODIUM BICARBONATE. [Concomitant]
     Active Substance: SODIUM BICARBONATE
  18. GLUCOSE [Concomitant]
     Active Substance: DEXTROSE
     Route: 042

REACTIONS (1)
  - Acute kidney injury [Recovered/Resolved]
